FAERS Safety Report 19901438 (Version 1)
Quarter: 2021Q3

REPORT INFORMATION
  Report Type: Spontaneous
  Country: CN (occurrence: CN)
  Receive Date: 20210930
  Receipt Date: 20210930
  Transmission Date: 20211014
  Serious: Yes (Hospitalization, Other)
  Sender: FDA-Public Use
  Company Number: CN-ASTELLAS-2021US036491

PATIENT
  Age: 11 Year
  Sex: Female
  Weight: 33 kg

DRUGS (2)
  1. PROGRAF [Suspect]
     Active Substance: TACROLIMUS
     Dosage: 0.5 MG, TWICE DAILY
     Route: 048
     Dates: start: 20210916, end: 20210923
  2. PROGRAF [Suspect]
     Active Substance: TACROLIMUS
     Indication: PROPHYLAXIS AGAINST TRANSPLANT REJECTION
     Route: 048
     Dates: start: 20210906, end: 20210916

REACTIONS (3)
  - Tremor [Recovering/Resolving]
  - Pyrexia [Unknown]
  - Complications of transplanted kidney [Unknown]

NARRATIVE: CASE EVENT DATE: 20210916
